FAERS Safety Report 21736319 (Version 1)
Quarter: 2022Q4

REPORT INFORMATION
  Report Type: Spontaneous
  Country: PH (occurrence: PH)
  Receive Date: 20221215
  Receipt Date: 20221215
  Transmission Date: 20230113
  Serious: Yes (Other)
  Sender: FDA-Public Use
  Company Number: PH-JNJFOC-20221218950

PATIENT
  Age: 3 Decade
  Sex: Male

DRUGS (2)
  1. RISPERDAL [Suspect]
     Active Substance: RISPERIDONE
     Indication: Developmental delay
     Dosage: START DATE 2016 OR 2017
     Route: 048
  2. RISPERDAL [Suspect]
     Active Substance: RISPERIDONE
     Route: 048
     Dates: end: 2021

REACTIONS (8)
  - Epilepsy [Unknown]
  - Bone disorder [Recovered/Resolved]
  - Increased appetite [Recovered/Resolved]
  - Overweight [Recovered/Resolved]
  - Somnolence [Recovered/Resolved]
  - Dysphagia [Unknown]
  - Wrong technique in product usage process [Unknown]
  - Off label use [Unknown]

NARRATIVE: CASE EVENT DATE: 20210101
